FAERS Safety Report 14294430 (Version 1)
Quarter: 2017Q4

REPORT INFORMATION
  Report Type: Spontaneous
  Country: US (occurrence: US)
  Receive Date: 20171218
  Receipt Date: 20171218
  Transmission Date: 20180321
  Serious: Yes (Other)
  Sender: FDA-Public Use
  Company Number: US-ZYDUS-018339

PATIENT
  Age: 49 Year
  Sex: Male

DRUGS (1)
  1. LEVOFLOXACIN. [Suspect]
     Active Substance: LEVOFLOXACIN
     Indication: UPPER RESPIRATORY TRACT INFECTION
     Route: 065

REACTIONS (9)
  - Wheezing [Unknown]
  - Blood immunoglobulin E increased [Unknown]
  - Pyrexia [Unknown]
  - Eosinophilia [Unknown]
  - Eosinophilic pneumonia acute [Unknown]
  - Leukocytosis [Unknown]
  - Bronchial secretion retention [Unknown]
  - Dyspnoea exertional [Recovering/Resolving]
  - Hypoxia [Recovering/Resolving]
